FAERS Safety Report 5132274-6 (Version None)
Quarter: 2006Q4

REPORT INFORMATION
  Report Type: 
  Country: None (occurrence: None)
  Receive Date: 20061023
  Receipt Date: 20060726
  Transmission Date: 20070319
  Serious: No
  Sender: FDA-Public Use
  Company Number: JP-BAYER-200613205GDS

PATIENT
  Age: 27 Year
  Sex: Male
  Weight: 41 kg

DRUGS (3)
  1. LEVITRA [Suspect]
     Indication: PULMONARY HYPERTENSION
     Dosage: TOTAL DAILY DOSE: 10 MG  UNIT DOSE: 5 MG
     Route: 048
     Dates: start: 20041215, end: 20041217
  2. O2 [Concomitant]
     Indication: PULMONARY HYPERTENSION
     Route: 065
  3. DORNER [Concomitant]
     Indication: PULMONARY HYPERTENSION
     Dosage: TOTAL DAILY DOSE: 120 ?G  UNIT DOSE: 20 ?G
     Route: 048
     Dates: start: 19950101, end: 20060101

REACTIONS (1)
  - ATRIAL FLUTTER [None]
